FAERS Safety Report 20903918 (Version 6)
Quarter: 2022Q3

REPORT INFORMATION
  Report Type: Spontaneous
  Country: US (occurrence: US)
  Receive Date: 20220602
  Receipt Date: 20220702
  Transmission Date: 20221027
  Serious: No
  Sender: FDA-Public Use
  Company Number: US-UNITED THERAPEUTICS-UNT-2022-011299

PATIENT
  Sex: Female
  Weight: 63.492 kg

DRUGS (5)
  1. REMODULIN [Suspect]
     Active Substance: TREPROSTINIL
     Indication: Pulmonary arterial hypertension
     Dosage: 0.012 ?G/KG (PUMP RATE OF 18 MCL/HOUR), CONTINUING
     Route: 058
     Dates: start: 20220519
  2. REMODULIN [Suspect]
     Active Substance: TREPROSTINIL
     Dosage: UNK, CONTINUING
     Route: 058
  3. REMODULIN [Suspect]
     Active Substance: TREPROSTINIL
     Dosage: 0.016 ?G/KG (PRE-FILLED WITH 2.6 ML PER CASSETTE, RATE OF 25 MCL/HOUR), CONTINUING
     Route: 058
  4. REMODULIN [Suspect]
     Active Substance: TREPROSTINIL
     Dosage: 0.017 ?G/KG (PRE-FILLED WITH 2.6 ML PER CASSETTE, RATE OF 26 MCL/HOUR), CONTINUING
     Route: 058
     Dates: start: 2022
  5. REMODULIN [Suspect]
     Active Substance: TREPROSTINIL
     Dosage: 0.018 ?G/KG (PRE-FILLED WITH 2.6 ML PER CASSETTE, PUMP RATE OF 28 MCL/HOUR), CONTINUING
     Route: 058
     Dates: start: 2022

REACTIONS (24)
  - Arthralgia [Unknown]
  - Myalgia [Unknown]
  - Infusion site pain [Recovered/Resolved]
  - Infusion site erythema [Not Recovered/Not Resolved]
  - Infusion site swelling [Not Recovered/Not Resolved]
  - Device infusion issue [Unknown]
  - Device wireless communication issue [Unknown]
  - Device malfunction [Unknown]
  - Device failure [Recovered/Resolved]
  - Infusion site haemorrhage [Unknown]
  - Device occlusion [Unknown]
  - Infusion site injury [Unknown]
  - Diarrhoea [Unknown]
  - Seasonal allergy [Not Recovered/Not Resolved]
  - Device leakage [Unknown]
  - Device use error [Unknown]
  - Wrong technique in product usage process [Unknown]
  - Device physical property issue [Unknown]
  - Device failure [Unknown]
  - Nasopharyngitis [Unknown]
  - Productive cough [Unknown]
  - Device infusion issue [Unknown]
  - Device infusion issue [Unknown]
  - Device failure [Unknown]

NARRATIVE: CASE EVENT DATE: 20220101
